FAERS Safety Report 7941427-0 (Version None)
Quarter: 2011Q4

REPORT INFORMATION
  Report Type: 
  Country: None (occurrence: None)
  Receive Date: 20111122
  Receipt Date: 20111122
  Transmission Date: 20120403
  Serious: No
  Sender: FDA-Public Use
  Company Number: None

PATIENT
  Sex: Female
  Weight: 77.1115 kg

DRUGS (1)
  1. ABILIFY [Suspect]
     Indication: MOOD SWINGS
     Dosage: 5MG 1 DAY  4-5 YEARS

REACTIONS (1)
  - URINARY INCONTINENCE [None]
